FAERS Safety Report 5156690-1 (Version None)
Quarter: 2006Q4

REPORT INFORMATION
  Report Type: 
  Country: None (occurrence: None)
  Receive Date: 20061115
  Receipt Date: 20061107
  Transmission Date: 20070319
  Serious: Yes (Hospitalization)
  Sender: FDA-Public Use
  Company Number: 2006AL003467

PATIENT
  Age: 80 Year
  Sex: Male

DRUGS (4)
  1. DICLOFENAC SODIUM [Suspect]
     Dosage: 50 MG; TID; PO
     Route: 048
     Dates: start: 20060712, end: 20060715
  2. ATENOLOL [Concomitant]
  3. ISOSORBIDE [Concomitant]
  4. OMEPRAZOLE [Concomitant]

REACTIONS (3)
  - CHOLESTASIS [None]
  - RENAL FAILURE ACUTE [None]
  - RENAL FAILURE CHRONIC [None]
